FAERS Safety Report 15532228 (Version 1)
Quarter: 2018Q4

REPORT INFORMATION
  Report Type: Report from Study
  Country: None (occurrence: RO)
  Receive Date: 20181019
  Receipt Date: 20181019
  Transmission Date: 20190205
  Serious: Yes (Other)
  Sender: FDA-Public Use
  Company Number: RO-ABBVIE-18S-135-2520723-00

PATIENT
  Age: 62 Year
  Sex: Male

DRUGS (4)
  1. VIEKIRAX [Suspect]
     Active Substance: OMBITASVIR\PARITAPREVIR\RITONAVIR
     Indication: HEPATITIS C
     Route: 048
     Dates: start: 20180504, end: 20180726
  2. VIEKIRAX [Suspect]
     Active Substance: OMBITASVIR\PARITAPREVIR\RITONAVIR
     Indication: HEPATIC CIRRHOSIS
  3. EXVIERA [Suspect]
     Active Substance: DASABUVIR
     Indication: HEPATIC CIRRHOSIS
  4. EXVIERA [Suspect]
     Active Substance: DASABUVIR
     Indication: HEPATITIS C
     Route: 048
     Dates: start: 20180504, end: 20180726

REACTIONS (5)
  - Diabetes mellitus [Unknown]
  - Peripheral vascular disorder [Not Recovered/Not Resolved]
  - Renal pain [Recovering/Resolving]
  - Chest pain [Recovering/Resolving]
  - Back pain [Recovering/Resolving]

NARRATIVE: CASE EVENT DATE: 201808
